FAERS Safety Report 4615466-1 (Version None)
Quarter: 2005Q1

REPORT INFORMATION
  Report Type: 
  Country: None (occurrence: None)
  Receive Date: 20050317
  Receipt Date: 20050304
  Transmission Date: 20050727
  Serious: Yes (Hospitalization)
  Sender: FDA-Public Use
  Company Number: 2005041516

PATIENT
  Age: 81 Year
  Sex: Female

DRUGS (9)
  1. ZELDOX (CAPSULES) (ZIPRASIDONE) [Suspect]
     Indication: SCHIZOPHRENIA, PARANOID TYPE
     Dosage: 40 M G, ORAL
     Route: 048
     Dates: start: 20040728, end: 20040730
  2. PROMETHAZINE HYDROCHLORIDE TAB [Suspect]
     Indication: ILL-DEFINED DISORDER
     Dosage: 150 MG ORAL
     Route: 048
     Dates: start: 20040720
  3. OXAZEPAM [Suspect]
     Indication: ILL-DEFINED DISORDER
     Dosage: 15 MG ORAL
     Route: 048
     Dates: start: 20040729
  4. MIRTAZAPINE [Suspect]
     Indication: ILL-DEFINED DISORDER
     Dosage: 45 MG ORAL  MONTHS
     Route: 048
  5. CITALOPRAM HYDROBROMIDE [Concomitant]
  6. ISOSORBIDE MONONITRATE [Concomitant]
  7. PANTOPRAZOLE SODIUM [Concomitant]
  8. MOLSIDOMINE (MOLSIDOMINE) [Concomitant]
  9. LEFAX /OLD FORM/ (DIMETICONE, SILICON DIOXIDE, COLLOIDAL ) [Concomitant]

REACTIONS (14)
  - ACTIVITIES OF DAILY LIVING IMPAIRED [None]
  - ASTHENIA [None]
  - DIFFICULTY IN WALKING [None]
  - DYSSTASIA [None]
  - GAIT DISTURBANCE [None]
  - HYPERHIDROSIS [None]
  - HYPOKALAEMIA [None]
  - HYPOTONIA [None]
  - IMPAIRED SELF-CARE [None]
  - MASKED FACIES [None]
  - MUSCLE RIGIDITY [None]
  - POSTURE ABNORMAL [None]
  - TENSION [None]
  - TREMOR [None]
